FAERS Safety Report 21178791 (Version 2)
Quarter: 2023Q1

REPORT INFORMATION
  Report Type: Report from Study
  Country: US (occurrence: US)
  Receive Date: 20220805
  Receipt Date: 20230120
  Transmission Date: 20230418
  Serious: Yes (Other)
  Sender: FDA-Public Use
  Company Number: US-JAZZ-2022-US-013612

PATIENT
  Sex: Female
  Weight: 79 kg

DRUGS (4)
  1. XYREM [Suspect]
     Active Substance: SODIUM OXYBATE
     Indication: Narcolepsy
     Dosage: UNK
     Route: 048
     Dates: start: 201302
  2. XYREM [Suspect]
     Active Substance: SODIUM OXYBATE
     Indication: Cataplexy
  3. XYREM [Suspect]
     Active Substance: SODIUM OXYBATE
     Indication: Somnolence
  4. CLONAZEPAM [Concomitant]
     Active Substance: CLONAZEPAM
     Indication: Product used for unknown indication
     Dosage: UNK
     Dates: start: 20210101

REACTIONS (9)
  - Suicidal ideation [Unknown]
  - Snoring [Unknown]
  - Bruxism [Unknown]
  - Obesity [Unknown]
  - Affective disorder [Unknown]
  - Cognitive disorder [Unknown]
  - COVID-19 [Unknown]
  - Dry mouth [Unknown]
  - Product storage error [Unknown]
